FAERS Safety Report 7888834-2 (Version None)
Quarter: 2011Q4

REPORT INFORMATION
  Report Type: 
  Country: None (occurrence: None)
  Receive Date: 20111031
  Receipt Date: 20111014
  Transmission Date: 20120403
  Serious: Yes (Hospitalization)
  Sender: FDA-Public Use
  Company Number: 2011SP048674

PATIENT
  Sex: Female

DRUGS (1)
  1. PEGATRON (PEGYLATED INTERFERON ALFA-2B W/RIBAVIRIN) [Suspect]
     Indication: HEPATITIS C
     Dates: start: 20110311

REACTIONS (14)
  - FEELING COLD [None]
  - STRESS [None]
  - INFLUENZA [None]
  - ANAEMIA [None]
  - CONDITION AGGRAVATED [None]
  - MALAISE [None]
  - ABASIA [None]
  - DRY SKIN [None]
  - FATIGUE [None]
  - ECZEMA [None]
  - DECREASED APPETITE [None]
  - MOOD SWINGS [None]
  - ASTHMA [None]
  - ADVERSE EVENT [None]
